FAERS Safety Report 19490586 (Version 2)
Quarter: 2021Q3

REPORT INFORMATION
  Report Type: Spontaneous
  Country: BR (occurrence: BR)
  Receive Date: 20210705
  Receipt Date: 20210824
  Transmission Date: 20211014
  Serious: Yes (Other)
  Sender: FDA-Public Use
  Company Number: BR-ROCHE-2862408

PATIENT
  Sex: Male
  Weight: 95 kg

DRUGS (9)
  1. VANCOCINE [Concomitant]
     Active Substance: VANCOMYCIN
     Dates: start: 20210616
  2. NORADRENALINE [Concomitant]
     Active Substance: NOREPINEPHRINE
     Indication: VASOCONSTRICTION
     Dates: start: 20210603, end: 20210616
  3. MYTEDOM [Concomitant]
     Active Substance: METHADONE HYDROCHLORIDE
     Indication: PAIN
     Dates: start: 20210616
  4. VALIUM [Suspect]
     Active Substance: DIAZEPAM
     Indication: ANXIETY
     Route: 048
     Dates: start: 20210607, end: 20210615
  5. PROPANTHELINE [Concomitant]
     Active Substance: PROPANTHELINE
     Indication: URINARY INCONTINENCE
     Dosage: 1 MG/ML
     Dates: start: 20210616
  6. OLANZAPINE. [Suspect]
     Active Substance: OLANZAPINE
     Indication: PSYCHOTIC DISORDER
     Route: 048
     Dates: start: 20210607, end: 20210615
  7. PRECEDEX [Suspect]
     Active Substance: DEXMEDETOMIDINE HYDROCHLORIDE
     Indication: HYPNOTHERAPY
     Route: 042
     Dates: start: 20210603, end: 20210615
  8. MERONEM [Concomitant]
     Active Substance: MEROPENEM
     Dates: start: 20210616
  9. SEROQUEL [Suspect]
     Active Substance: QUETIAPINE FUMARATE
     Indication: PSYCHOTIC DISORDER
     Route: 048
     Dates: start: 20210607, end: 20210615

REACTIONS (1)
  - Depressed level of consciousness [Recovered/Resolved]
